FAERS Safety Report 13647846 (Version 2)
Quarter: 2017Q3

REPORT INFORMATION
  Report Type: Spontaneous
  Country: US (occurrence: US)
  Receive Date: 20170613
  Receipt Date: 20170801
  Transmission Date: 20171127
  Serious: No
  Sender: FDA-Public Use
  Company Number: US-GLAXOSMITHKLINE-US2017089456

PATIENT
  Age: 51 Year
  Sex: Female

DRUGS (8)
  1. BASAGLAR [Concomitant]
     Active Substance: INSULIN GLARGINE
  2. LISINOPRIL. [Concomitant]
     Active Substance: LISINOPRIL
  3. GLYBURIDE. [Concomitant]
     Active Substance: GLYBURIDE
  4. VITAMIN D3 [Concomitant]
     Active Substance: CHOLECALCIFEROL
  5. TANZEUM [Suspect]
     Active Substance: ALBIGLUTIDE
     Indication: TYPE 2 DIABETES MELLITUS
     Dosage: 30 MG, WE
     Route: 042
     Dates: start: 20170404
  6. METFORMIN [Concomitant]
     Active Substance: METFORMIN HYDROCHLORIDE
  7. RANITIDINE. [Concomitant]
     Active Substance: RANITIDINE
  8. SIMVASTATIN. [Concomitant]
     Active Substance: SIMVASTATIN

REACTIONS (7)
  - Injection site pruritus [Recovering/Resolving]
  - Product quality issue [Unknown]
  - Injection site rash [Recovering/Resolving]
  - Injection site erythema [Recovering/Resolving]
  - Wrong technique in device usage process [Unknown]
  - Underdose [Unknown]
  - Accidental exposure to product [Unknown]

NARRATIVE: CASE EVENT DATE: 20170605
